FAERS Safety Report 19592132 (Version 1)
Quarter: 2021Q3

REPORT INFORMATION
  Report Type: Spontaneous
  Country: US (occurrence: US)
  Receive Date: 20210722
  Receipt Date: 20210722
  Transmission Date: 20211014
  Serious: No
  Sender: FDA-Public Use
  Company Number: US-DRREDDYS-SPO/USA/21/0137384

PATIENT
  Age: 40 Year
  Sex: Male
  Weight: 110.25 kg

DRUGS (2)
  1. SUMATRIPTAN INJECTION USP, 6 MG/0.5 ML [Suspect]
     Active Substance: SUMATRIPTAN
     Indication: MIGRAINE
     Dosage: 0.5ML
     Dates: start: 20210702
  2. VITAMINS [Concomitant]
     Active Substance: VITAMINS
     Indication: PRODUCT USED FOR UNKNOWN INDICATION

REACTIONS (5)
  - Product dose omission issue [Unknown]
  - Injection site haemorrhage [Unknown]
  - Underdose [Unknown]
  - Injury associated with device [Unknown]
  - Product quality issue [Unknown]
